FAERS Safety Report 9656665 (Version 1)
Quarter: 2013Q4

REPORT INFORMATION
  Report Type: Spontaneous
  Country: US (occurrence: None)
  Receive Date: 20131029
  Receipt Date: 20131029
  Transmission Date: 20140711
  Serious: No
  Sender: FDA-Public Use
  Company Number: None

PATIENT
  Sex: 0

DRUGS (1)
  1. IODINE [Suspect]
     Dates: start: 20130811, end: 20130812

REACTIONS (19)
  - Abdominal discomfort [None]
  - Diarrhoea [None]
  - Abdominal pain [None]
  - Dyspnoea [None]
  - Fatigue [None]
  - Blood mercury abnormal [None]
  - Palpitations [None]
  - Musculoskeletal chest pain [None]
  - Nausea [None]
  - Arthralgia [None]
  - Muscular weakness [None]
  - Ataxia [None]
  - Alanine aminotransferase increased [None]
  - Blood urea increased [None]
  - Tri-iodothyronine free decreased [None]
  - Blood thyroid stimulating hormone decreased [None]
  - Product label issue [None]
  - Product quality issue [None]
  - Blood creatinine increased [None]
